FAERS Safety Report 17052472 (Version 1)
Quarter: 2019Q4

REPORT INFORMATION
  Report Type: Spontaneous
  Country: CA (occurrence: CA)
  Receive Date: 20191120
  Receipt Date: 20191120
  Transmission Date: 20200122
  Serious: Yes (Other)
  Sender: FDA-Public Use
  Company Number: CA-PFIZER INC-2019497563

PATIENT
  Sex: Male

DRUGS (1)
  1. MORPHINE SULFATE. [Suspect]
     Active Substance: MORPHINE SULFATE
     Dosage: UNK
     Route: 030

REACTIONS (5)
  - Respiratory depression [Unknown]
  - Unresponsive to stimuli [Unknown]
  - Blood pressure decreased [Unknown]
  - Somnolence [Unknown]
  - Hypotension [Unknown]
